FAERS Safety Report 15191459 (Version 2)
Quarter: 2018Q3

REPORT INFORMATION
  Report Type: Report from Study
  Country: US (occurrence: US)
  Receive Date: 20180724
  Receipt Date: 20180918
  Transmission Date: 20181010
  Serious: No
  Sender: FDA-Public Use
  Company Number: US-AMGEN-USASL2018074727

PATIENT
  Age: 66 Year
  Sex: Female

DRUGS (2)
  1. NEUPOGEN [Suspect]
     Active Substance: FILGRASTIM
     Indication: RED BLOOD CELL COUNT DECREASED
     Dosage: UNK, ON DAY 3 OF EVERY ON WEEK WITH KYPROLIS
     Route: 065
  2. KYPROLIS [Suspect]
     Active Substance: CARFILZOMIB
     Indication: PLASMA CELL MYELOMA
     Dosage: UNK, TWICE A WEEK FOR 3 WEEKS THEN ONE WEEK OFF
     Route: 065

REACTIONS (2)
  - Red blood cell count decreased [Unknown]
  - Off label use [Unknown]
